FAERS Safety Report 21116678 (Version 1)
Quarter: 2022Q3

REPORT INFORMATION
  Report Type: Report from Study
  Country: IT (occurrence: IT)
  Receive Date: 20220722
  Receipt Date: 20220722
  Transmission Date: 20221027
  Serious: Yes (Other)
  Sender: FDA-Public Use
  Company Number: IT-ABBVIE-22K-083-4475760-00

PATIENT
  Age: 78 Year
  Sex: Female

DRUGS (2)
  1. CARBIDOPA\LEVODOPA [Suspect]
     Active Substance: CARBIDOPA\LEVODOPA
     Indication: Parkinson^s disease
     Dosage: TOTAL DAILY DOSE (MG): 852; PUMP SETTING: MD: 1+3; CR: 2,4 (16H); ED: 1,6
     Route: 050
     Dates: start: 20180614
  2. CARBIDOPA\LEVODOPA [Suspect]
     Active Substance: CARBIDOPA\LEVODOPA

REACTIONS (2)
  - Acetabulum fracture [Unknown]
  - Fall [Unknown]

NARRATIVE: CASE EVENT DATE: 20220601
